FAERS Safety Report 5132940-2 (Version None)
Quarter: 2006Q4

REPORT INFORMATION
  Report Type: 
  Country: None (occurrence: None)
  Receive Date: 20061019
  Receipt Date: 20061019
  Transmission Date: 20070319
  Serious: No
  Sender: FDA-Public Use
  Company Number: None

PATIENT
  Age: 68 Year
  Sex: Male
  Weight: 105.1 kg

DRUGS (15)
  1. DOCETAXEL [Suspect]
  2. GOSERELIN [Concomitant]
  3. DEXAMETHASONE [Concomitant]
  4. ALENDRONATE SODIUM [Concomitant]
  5. TAMSULOSIN HCL [Concomitant]
  6. FELODIPINE [Concomitant]
  7. LISINOPRIL [Concomitant]
  8. NAPROXEN [Concomitant]
  9. ARTIFICIAL TEARS POLYVINYL ALCOHOL [Concomitant]
  10. LOXOCAMIDE TROMETHAMINE [Concomitant]
  11. ACETAMINOPHEN [Concomitant]
  12. NIACIN (NIASPAN-KOS) [Concomitant]
  13. CALCIUM 500MG/VITAMIN D 200 [Concomitant]
  14. TRAMADOL HCL [Concomitant]
  15. ASPIRIN [Concomitant]

REACTIONS (1)
  - OEDEMA PERIPHERAL [None]
